FAERS Safety Report 4557066-8 (Version None)
Quarter: 2005Q1

REPORT INFORMATION
  Report Type: 
  Country: None (occurrence: None)
  Receive Date: 20050120
  Receipt Date: 20050117
  Transmission Date: 20050727
  Serious: Yes (Other)
  Sender: FDA-Public Use
  Company Number: US-GLAXOSMITHKLINE-A0540971A

PATIENT
  Age: 29 Year
  Sex: Female

DRUGS (1)
  1. WELLBUTRIN XL [Suspect]
     Indication: DRUG USE FOR UNKNOWN INDICATION
     Dosage: 450MG IN THE MORNING
     Route: 048

REACTIONS (3)
  - GRAND MAL CONVULSION [None]
  - MEMORY IMPAIRMENT [None]
  - SPEECH DISORDER [None]
